FAERS Safety Report 5725099-1 (Version None)
Quarter: 2008Q2

REPORT INFORMATION
  Report Type: 
  Country: None (occurrence: None)
  Receive Date: 20080430
  Receipt Date: 20080418
  Transmission Date: 20081010
  Serious: No
  Sender: FDA-Public Use
  Company Number: APP200800321

PATIENT
  Age: 78 Year
  Sex: Female
  Weight: 64.8644 kg

DRUGS (4)
  1. HEPARIN SODIUM INJECTION [Suspect]
     Indication: PERITONEAL DIALYSIS
     Dosage: AS NEEDED EACH DIALYSIS, INTRAPERITONEAL
     Route: 033
     Dates: start: 20080310
  2. HEPARIN SODIUM INJECTION [Suspect]
  3. LABETALOL HCL [Concomitant]
  4. CLONIDINE [Concomitant]

REACTIONS (13)
  - ABDOMINAL PAIN UPPER [None]
  - CHEST PAIN [None]
  - DYSPHAGIA [None]
  - DYSPNOEA [None]
  - GASTRIC ULCER [None]
  - GASTROINTESTINAL INFECTION [None]
  - HYPOAESTHESIA ORAL [None]
  - INSOMNIA [None]
  - MOUTH ULCERATION [None]
  - MUSCULOSKELETAL PAIN [None]
  - NECK PAIN [None]
  - PHARYNGEAL OEDEMA [None]
  - STOMATITIS [None]
